FAERS Safety Report 12059390 (Version 1)
Quarter: 2016Q1

REPORT INFORMATION
  Report Type: Spontaneous
  Country: US (occurrence: US)
  Receive Date: 20160210
  Receipt Date: 20160210
  Transmission Date: 20160526
  Serious: Yes (Other)
  Sender: FDA-Public Use
  Company Number: US-ACTAVIS-2015-16446

PATIENT
  Age: 30 Year
  Sex: Female

DRUGS (1)
  1. NEXT CHOICE ONE DOSE [Suspect]
     Active Substance: LEVONORGESTREL
     Indication: POST COITAL CONTRACEPTION
     Dosage: UNK, SINGLE
     Route: 048
     Dates: start: 201506

REACTIONS (4)
  - Drug ineffective [Unknown]
  - Pregnancy on oral contraceptive [Unknown]
  - Abdominal pain upper [Recovered/Resolved]
  - Maternal exposure during pregnancy [Unknown]
